FAERS Safety Report 10768845 (Version 20)
Quarter: 2017Q1

REPORT INFORMATION
  Report Type: Report from Study
  Country: CA (occurrence: CA)
  Receive Date: 20150206
  Receipt Date: 20170207
  Transmission Date: 20170428
  Serious: Yes (Hospitalization, Other)
  Sender: FDA-Public Use
  Company Number: CA-ROCHE-1531055

PATIENT
  Age: 45 Year
  Sex: Female
  Weight: 82 kg

DRUGS (14)
  1. HERCEPTIN [Suspect]
     Active Substance: TRASTUZUMAB
     Indication: BREAST CANCER
     Route: 065
     Dates: start: 20090101
  2. CLONAZEPAM. [Concomitant]
     Active Substance: CLONAZEPAM
  3. CITALOPRAM [Concomitant]
     Active Substance: CITALOPRAM HYDROBROMIDE
  4. KADCYLA [Suspect]
     Active Substance: ADO-TRASTUZUMAB EMTANSINE
     Route: 042
     Dates: start: 20150817
  5. KADCYLA [Suspect]
     Active Substance: ADO-TRASTUZUMAB EMTANSINE
     Route: 042
     Dates: start: 20160118
  6. DEXAMETHAZONE [Suspect]
     Active Substance: DEXAMETHASONE
     Indication: NAUSEA
     Route: 065
  7. MORPHINE [Concomitant]
     Active Substance: MORPHINE
  8. PANTOPRAZOLE [Concomitant]
     Active Substance: PANTOPRAZOLE SODIUM
  9. ZOPICLONE [Concomitant]
     Active Substance: ZOPICLONE
  10. CARBOCAL [Concomitant]
     Active Substance: CALCIUM CARBONATE
  11. KADCYLA [Suspect]
     Active Substance: ADO-TRASTUZUMAB EMTANSINE
     Indication: HER-2 POSITIVE BREAST CANCER
     Route: 042
     Dates: start: 20150324
  12. LYRICA [Concomitant]
     Active Substance: PREGABALIN
  13. AREDIA [Concomitant]
     Active Substance: PAMIDRONATE DISODIUM
  14. GRANISETRON [Concomitant]
     Active Substance: GRANISETRON
     Indication: PREMEDICATION

REACTIONS (26)
  - Panic attack [Unknown]
  - Dyspnoea [Not Recovered/Not Resolved]
  - Nausea [Not Recovered/Not Resolved]
  - Mental disorder [Not Recovered/Not Resolved]
  - Aphonia [Recovered/Resolved]
  - Mood altered [Not Recovered/Not Resolved]
  - Dry mouth [Not Recovered/Not Resolved]
  - Diarrhoea [Not Recovered/Not Resolved]
  - Hot flush [Unknown]
  - Dysarthria [Recovering/Resolving]
  - Infusion related reaction [Unknown]
  - Viral infection [Unknown]
  - Spinal disorder [Unknown]
  - Infection [Not Recovered/Not Resolved]
  - Rash [Recovered/Resolved]
  - Ankle fracture [Not Recovered/Not Resolved]
  - Nausea [Not Recovered/Not Resolved]
  - Alopecia [Recovering/Resolving]
  - Vomiting [Unknown]
  - Depression [Unknown]
  - Insomnia [Not Recovered/Not Resolved]
  - Oxygen saturation decreased [Unknown]
  - Chills [Unknown]
  - Fatigue [Not Recovered/Not Resolved]
  - Nasopharyngitis [Recovered/Resolved]
  - Fatigue [Not Recovered/Not Resolved]

NARRATIVE: CASE EVENT DATE: 201303
